FAERS Safety Report 12060306 (Version 1)
Quarter: 2016Q1

REPORT INFORMATION
  Report Type: Spontaneous
  Country: US (occurrence: US)
  Receive Date: 20160210
  Receipt Date: 20160210
  Transmission Date: 20160526
  Serious: Yes (Other)
  Sender: FDA-Public Use
  Company Number: US-CELGENE-USA-2016014858

PATIENT
  Sex: Male
  Weight: 88.53 kg

DRUGS (2)
  1. OTEZLA [Suspect]
     Active Substance: APREMILAST
     Route: 048
     Dates: start: 201601, end: 20160129
  2. OTEZLA [Suspect]
     Active Substance: APREMILAST
     Indication: PRODUCT USED FOR UNKNOWN INDICATION
     Dosage: DAY 1:AM?DAY 2:AM/PM
     Route: 048
     Dates: start: 20160104

REACTIONS (1)
  - Adverse drug reaction [Unknown]
